FAERS Safety Report 15594003 (Version 2)
Quarter: 2019Q1

REPORT INFORMATION
  Report Type: Spontaneous
  Country: JP (occurrence: JP)
  Receive Date: 20181107
  Receipt Date: 20190319
  Transmission Date: 20190417
  Serious: Yes (Death, Life-Threatening, Other)
  Sender: FDA-Public Use
  Company Number: JP-ALLERGAN-1852448US

PATIENT
  Sex: Male

DRUGS (12)
  1. BOTOX [Suspect]
     Active Substance: ONABOTULINUMTOXINA
     Dosage: 200 IU, SINGLE
     Route: 030
     Dates: start: 20130926, end: 20130926
  2. BOTOX [Suspect]
     Active Substance: ONABOTULINUMTOXINA
     Dosage: 200 IU, SINGLE
     Route: 030
     Dates: start: 20140627, end: 20140627
  3. BOTOX [Suspect]
     Active Substance: ONABOTULINUMTOXINA
     Indication: EXTREMITY CONTRACTURE
     Dosage: 200 IU, SINGLE
     Route: 030
     Dates: start: 20160810, end: 20160810
  4. BOTOX [Suspect]
     Active Substance: ONABOTULINUMTOXINA
     Dosage: 200 IU, SINGLE
     Route: 030
     Dates: start: 20151112, end: 20151112
  5. CEREDIST [Concomitant]
     Active Substance: TALTIRELIN
     Indication: SPINOCEREBELLAR DISORDER
     Dosage: 10 MG, QD
     Dates: end: 20170301
  6. BOTOX [Suspect]
     Active Substance: ONABOTULINUMTOXINA
     Dosage: 200 IU, SINGLE
     Route: 030
     Dates: start: 20150817, end: 20150817
  7. BOTOX [Suspect]
     Active Substance: ONABOTULINUMTOXINA
     Dosage: 150 IU, SINGLE
     Route: 030
     Dates: start: 20130624, end: 20130624
  8. MAGMITT [Concomitant]
     Active Substance: MAGNESIUM OXIDE
     Indication: DIARRHOEA
     Dosage: 660 MG, QD
     Dates: end: 20170301
  9. BOTOX [Suspect]
     Active Substance: ONABOTULINUMTOXINA
     Dosage: 200 IU, SINGLE
     Route: 030
     Dates: start: 20160406, end: 20160406
  10. BOTOX [Suspect]
     Active Substance: ONABOTULINUMTOXINA
     Dosage: 200 IU, SINGLE
     Route: 030
     Dates: start: 20131227, end: 20131227
  11. AMBROXOL HYDROCHLORIDE [Concomitant]
     Active Substance: AMBROXOL HYDROCHLORIDE
     Indication: PRODUCTIVE COUGH
     Dosage: 45 MG, QD
     Dates: end: 20170301
  12. RIVOTRIL [Concomitant]
     Active Substance: CLONAZEPAM
     Indication: SEIZURE PROPHYLAXIS
     Dosage: 0.25 MG, QD
     Dates: end: 20170301

REACTIONS (7)
  - Urinary tract infection [Recovered/Resolved]
  - Disease progression [Unknown]
  - Pyrexia [Unknown]
  - Pneumonia [Recovered/Resolved]
  - Sputum increased [Unknown]
  - Product use in unapproved indication [Unknown]
  - Asthenia [Unknown]

NARRATIVE: CASE EVENT DATE: 2016
